FAERS Safety Report 21415647 (Version 5)
Quarter: 2023Q2

REPORT INFORMATION
  Report Type: Report from Study
  Country: CA (occurrence: CA)
  Receive Date: 20221006
  Receipt Date: 20230614
  Transmission Date: 20230722
  Serious: Yes (Other)
  Sender: FDA-Public Use
  Company Number: CA-JNJFOC-20220905336

PATIENT
  Age: 52 Year
  Sex: Male
  Weight: 59.02 kg

DRUGS (3)
  1. STELARA [Suspect]
     Active Substance: USTEKINUMAB
     Indication: Crohn^s disease
     Dosage: EXPIRY DATE: 30-NOV-2025
     Route: 058
     Dates: start: 20220512
  2. STELARA [Suspect]
     Active Substance: USTEKINUMAB
     Dosage: PARTIAL HARVEY-BRADSHAW COMPLETED, 4TH INJECTION.?PATIENT RECEIVED 13TH INJECTION OF 90 MG STELARA D
     Route: 058
     Dates: start: 20220913
  3. METHOTREXATE [Concomitant]
     Active Substance: METHOTREXATE
     Indication: Crohn^s disease
     Route: 030
     Dates: start: 20230213

REACTIONS (7)
  - Stoma creation [Unknown]
  - Stoma obstruction [Unknown]
  - Intestinal obstruction [Unknown]
  - Crohn^s disease [Recovering/Resolving]
  - Stoma site pain [Unknown]
  - Drug ineffective [Unknown]
  - Off label use [Unknown]

NARRATIVE: CASE EVENT DATE: 20220101
